FAERS Safety Report 8559270-0 (Version None)
Quarter: 2012Q3

REPORT INFORMATION
  Report Type: 
  Country: None (occurrence: None)
  Receive Date: 20120802
  Receipt Date: 20120726
  Transmission Date: 20120928
  Serious: Yes (Other)
  Sender: FDA-Public Use
  Company Number: PHEH2012US010342

PATIENT
  Sex: Female
  Weight: 80.726 kg

DRUGS (9)
  1. ASPIRIN [Concomitant]
  2. CELEBREX [Concomitant]
  3. ASCORBIC ACID [Concomitant]
  4. SANDOSTATIN LAR [Suspect]
     Indication: ACROMEGALY
     Dosage: 30 MG, MONTHLY
     Route: 030
     Dates: start: 20120427
  5. CYMBALTA [Concomitant]
  6. NEURONTIN [Concomitant]
  7. VITAMIN B COMPLEX CAP [Concomitant]
  8. VITAMIN D [Concomitant]
  9. LOSARTAN POTASSIUM [Concomitant]

REACTIONS (4)
  - MOUTH ULCERATION [None]
  - ORAL PAIN [None]
  - PALATAL OEDEMA [None]
  - TONGUE ULCERATION [None]
